FAERS Safety Report 8804594 (Version 2)
Quarter: 2012Q4

REPORT INFORMATION
  Report Type: 
  Country: US (occurrence: US)
  Receive Date: 20120924
  Receipt Date: 20121219
  Transmission Date: 20130627
  Serious: Yes (Death, Hospitalization, Other)
  Sender: FDA-Public Use
  Company Number: US-MPIJNJ-2012-06495

PATIENT
  Age: 68 Year
  Sex: Male
  Weight: 86.17 kg

DRUGS (2)
  1. VELCADE [Suspect]
     Indication: MULTIPLE MYELOMA
     Dosage: UNK, Cyclic
     Route: 058
     Dates: start: 20120810
  2. REVLIMID [Suspect]
     Indication: MULTIPLE MYELOMA
     Dosage: UNK, Cyclic
     Route: 048
     Dates: start: 20120810, end: 20120909

REACTIONS (6)
  - Death [Fatal]
  - Haemoptysis [Not Recovered/Not Resolved]
  - Investigation [Not Recovered/Not Resolved]
  - Feeling abnormal [Not Recovered/Not Resolved]
  - Dyspnoea [Not Recovered/Not Resolved]
  - Oedema peripheral [Not Recovered/Not Resolved]
